FAERS Safety Report 12013605 (Version 4)
Quarter: 2018Q2

REPORT INFORMATION
  Report Type: Spontaneous
  Country: BR (occurrence: BR)
  Receive Date: 20160205
  Receipt Date: 20180529
  Transmission Date: 20180711
  Serious: Yes (Other)
  Sender: FDA-Public Use
  Company Number: BR-JNJFOC-20160200680

PATIENT
  Sex: Male
  Weight: 56 kg

DRUGS (4)
  1. MODULON [Concomitant]
     Route: 065
  2. REMICADE [Suspect]
     Active Substance: INFLIXIMAB
     Indication: CROHN^S DISEASE
     Dosage: 3 DOSAGE FORM, 30 DAY INTERVAL
     Route: 042
     Dates: end: 2017
  3. REMICADE [Suspect]
     Active Substance: INFLIXIMAB
     Indication: CROHN^S DISEASE
     Dosage: 60 DAY INTERVAL
     Route: 042
     Dates: start: 201304
  4. PURINETHOL [Concomitant]
     Active Substance: MERCAPTOPURINE
     Route: 065

REACTIONS (9)
  - Growth retardation [Recovered/Resolved]
  - Off label use [Unknown]
  - Weight gain poor [Recovered/Resolved]
  - Fistula inflammation [Unknown]
  - Anal fistula infection [Unknown]
  - Pyrexia [Recovered/Resolved]
  - Inappropriate schedule of drug administration [Unknown]
  - Weight increased [Unknown]
  - Drug ineffective [Unknown]
